FAERS Safety Report 5726341-3 (Version None)
Quarter: 2008Q2

REPORT INFORMATION
  Report Type: 
  Country: None (occurrence: None)
  Receive Date: 20080502
  Receipt Date: 20080310
  Transmission Date: 20081010
  Serious: No
  Sender: FDA-Public Use
  Company Number: US-BOEHRINGER INGELHEIM GMBH, GERMANY-2008-BP-03631BP

PATIENT
  Age: 92 Year
  Sex: Female

DRUGS (6)
  1. MICARDIS [Suspect]
     Indication: HYPERTENSION
     Route: 048
     Dates: start: 20060701
  2. WELLBUTRIN [Concomitant]
  3. NITROFURANTOIN [Concomitant]
  4. SYNTHROID [Concomitant]
     Indication: HYPOTHYROIDISM
  5. DITROPAN XL [Concomitant]
  6. NEXIUM [Concomitant]

REACTIONS (8)
  - CONSTIPATION [None]
  - DRY EYE [None]
  - DRY MOUTH [None]
  - EYE PAIN [None]
  - EYE PRURITUS [None]
  - GASTROOESOPHAGEAL REFLUX DISEASE [None]
  - POLLAKIURIA [None]
  - RESPIRATORY TRACT CONGESTION [None]
